FAERS Safety Report 13016802 (Version 3)
Quarter: 2016Q4

REPORT INFORMATION
  Report Type: Spontaneous
  Country: IT (occurrence: IT)
  Receive Date: 20161212
  Receipt Date: 20161223
  Transmission Date: 20170207
  Serious: Yes (Other)
  Sender: FDA-Public Use
  Company Number: IT-ROCHE-1866262

PATIENT
  Age: 34 Year
  Sex: Female

DRUGS (3)
  1. TRIAZOLAM. [Suspect]
     Active Substance: TRIAZOLAM
     Indication: ANXIETY
     Dosage: ABUSED DOSE
     Route: 048
     Dates: start: 20140517, end: 20140517
  2. VALIUM [Suspect]
     Active Substance: DIAZEPAM
     Indication: ANXIETY
     Dosage: 5 MG/ML ORAL DROPS, SOLUTION^: ABUSED DOSE
     Route: 048
     Dates: start: 20140517, end: 20140517
  3. CITALOPRAM [Suspect]
     Active Substance: CITALOPRAM HYDROBROMIDE
     Indication: PRODUCT USED FOR UNKNOWN INDICATION
     Dosage: 20 MG FILM-COATED TABLETS - 28 SCORED TABLETS
     Route: 048
     Dates: start: 20140517, end: 20140517

REACTIONS (6)
  - Asthenia [Recovering/Resolving]
  - Psychomotor retardation [Recovering/Resolving]
  - Vomiting [Recovering/Resolving]
  - Tremor [Recovering/Resolving]
  - Sopor [Recovering/Resolving]
  - Drug abuse [Unknown]

NARRATIVE: CASE EVENT DATE: 20140517
